FAERS Safety Report 4391740-1 (Version None)
Quarter: 2004Q3

REPORT INFORMATION
  Report Type: 
  Country: None (occurrence: None)
  Receive Date: 20040701
  Receipt Date: 20040608
  Transmission Date: 20050211
  Serious: Yes (Death)
  Sender: FDA-Public Use
  Company Number: 2004218158US

PATIENT
  Age: 60 Year
  Sex: Female

DRUGS (1)
  1. NICOTROL [Suspect]
     Dosage: 15 MG, QD, TRANDSDERMAL
     Route: 062
     Dates: start: 19920101, end: 19920101

REACTIONS (2)
  - CARDIOMYOPATHY [None]
  - OEDEMA PERIPHERAL [None]
